FAERS Safety Report 7368920-6 (Version None)
Quarter: 2011Q1

REPORT INFORMATION
  Report Type: 
  Country: None (occurrence: None)
  Receive Date: 20110314
  Receipt Date: 20110304
  Transmission Date: 20110831
  Serious: Yes (Hospitalization)
  Sender: FDA-Public Use
  Company Number: 850756

PATIENT
  Age: 78 Year
  Sex: Male

DRUGS (13)
  1. (TAZOCIN) [Suspect]
     Indication: BACTERIAL INFECTION
     Dosage: 4.5 MG MILLIGRAM(S) (3 DAY) INTRAVENOUS (NOT OTHERWISE SPECIFIED)
     Route: 042
     Dates: start: 20101206, end: 20101229
  2. (CIPROFLOXACIN) [Concomitant]
  3. FLOXACILLIN SODIUM [Concomitant]
  4. (GLICLAZIDE) [Concomitant]
  5. (NITROFURAQNTION) [Concomitant]
  6. (FUROSEMIDE) [Concomitant]
  7. TRIMETHOPRIM [Concomitant]
  8. LISINOPRIL [Concomitant]
  9. GENTAMICIN SULFATE [Suspect]
     Indication: BACTERIAL INFECTION
     Dosage: 320 MG MILLIGRAM(S), 1 DAY, INTRAVENOUS (NOT  SPECIFIED)
     Route: 042
     Dates: start: 20101206, end: 20101229
  10. METFORMIN HCL [Concomitant]
  11. FERROUS FUMARATE [Concomitant]
  12. (OMEPRAZOLE) [Concomitant]
  13. SIMVASTATIN [Concomitant]

REACTIONS (5)
  - NASOPHARYNGITIS [None]
  - COUGH [None]
  - WHITE BLOOD CELL COUNT DECREASED [None]
  - PAIN [None]
  - NEUTROPENIA [None]
